FAERS Safety Report 8003021-5 (Version None)
Quarter: 2011Q4

REPORT INFORMATION
  Report Type: 
  Country: None (occurrence: None)
  Receive Date: 20111222
  Receipt Date: 20110912
  Transmission Date: 20120403
  Serious: No
  Sender: FDA-Public Use
  Company Number: US-GLAXOSMITHKLINE-A0944177A

PATIENT
  Age: 37 Year
  Sex: Male

DRUGS (3)
  1. AVODART [Suspect]
     Indication: BENIGN PROSTATIC HYPERPLASIA
     Dosage: .5MG WEEKLY
     Route: 048
     Dates: start: 20080101, end: 20080101
  2. HERBAL MEDICATION [Concomitant]
     Indication: PEYRONIE'S DISEASE
  3. PHOSPHODIESTERASE INHIBITOR [Concomitant]

REACTIONS (3)
  - ERECTILE DYSFUNCTION [None]
  - LOSS OF LIBIDO [None]
  - ORGANIC ERECTILE DYSFUNCTION [None]
